FAERS Safety Report 18025311 (Version 1)
Quarter: 2020Q3

REPORT INFORMATION
  Report Type: Report from Study
  Country: CA (occurrence: CA)
  Receive Date: 20200715
  Receipt Date: 20200715
  Transmission Date: 20201103
  Serious: Yes (Other)
  Sender: FDA-Public Use
  Company Number: CA-ACCORD-190121

PATIENT
  Age: 77 Year
  Sex: Female

DRUGS (16)
  1. TIAZAC XC [Concomitant]
     Active Substance: DILTIAZEM HYDROCHLORIDE
  2. SYMBICORT [Concomitant]
     Active Substance: BUDESONIDE\FORMOTEROL FUMARATE DIHYDRATE
  3. PREGABALIN. [Concomitant]
     Active Substance: PREGABALIN
  4. IRON [Concomitant]
     Active Substance: IRON
  5. DEXILANT [Concomitant]
     Active Substance: DEXLANSOPRAZOLE
  6. AMITRIPTYLINE [Concomitant]
     Active Substance: AMITRIPTYLINE
     Indication: PRODUCT USED FOR UNKNOWN INDICATION
  7. PARACETAMOL [Concomitant]
     Active Substance: ACETAMINOPHEN
  8. EMOLAX [Concomitant]
     Indication: CONSTIPATION
  9. ZOPICLONE [Concomitant]
     Active Substance: ZOPICLONE
     Indication: INSOMNIA
  10. MYCOPHENOLIC ACID. [Suspect]
     Active Substance: MYCOPHENOLIC ACID
     Indication: PULMONARY FIBROSIS
  11. DOCUSATE [Concomitant]
     Active Substance: DOCUSATE
  12. CALCIUM GLUCONATE. [Concomitant]
     Active Substance: CALCIUM GLUCONATE
  13. PREDNISONE. [Suspect]
     Active Substance: PREDNISONE
     Indication: PRODUCT USED FOR UNKNOWN INDICATION
  14. SYNTHROID [Concomitant]
     Active Substance: LEVOTHYROXINE SODIUM
  15. SENNOSIDE A+B [Concomitant]
     Active Substance: SENNOSIDES A AND B
     Indication: CONSTIPATION
  16. FORTEO [Concomitant]
     Active Substance: TERIPARATIDE

REACTIONS (4)
  - Femur fracture [Unknown]
  - Drug ineffective [Unknown]
  - Off label use [Unknown]
  - Intentional product use issue [Unknown]
